FAERS Safety Report 4944513-2 (Version None)
Quarter: 2006Q1

REPORT INFORMATION
  Report Type: 
  Country: None (occurrence: None)
  Receive Date: 20060315
  Receipt Date: 20041112
  Transmission Date: 20060701
  Serious: Yes (Other)
  Sender: FDA-Public Use
  Company Number: US-MERCK-0411USA02294

PATIENT
  Age: 30 Year
  Sex: Male

DRUGS (4)
  1. VIOXX [Suspect]
     Indication: COSTOCHONDRITIS
     Route: 048
  2. VIOXX [Suspect]
     Route: 048
     Dates: start: 20010921
  3. MECLIZINE [Concomitant]
     Route: 065
  4. RISPERDAL [Concomitant]
     Route: 065

REACTIONS (11)
  - ANXIETY [None]
  - ARTHRITIS [None]
  - BLOOD PRESSURE INCREASED [None]
  - CEREBROVASCULAR ACCIDENT [None]
  - CONTUSION [None]
  - DEPRESSION [None]
  - DIZZINESS [None]
  - HEART RATE INCREASED [None]
  - MASTITIS [None]
  - SCOLIOSIS [None]
  - URETHRITIS [None]
